FAERS Safety Report 6973574-4 (Version None)
Quarter: 2010Q3

REPORT INFORMATION
  Report Type: 
  Country: None (occurrence: None)
  Receive Date: 20100909
  Receipt Date: 20100831
  Transmission Date: 20110219
  Serious: Yes (Hospitalization, Disabling, Other)
  Sender: FDA-Public Use
  Company Number: GB-ABBOTT-10P-167-0657787-00

PATIENT
  Sex: Female
  Weight: 103 kg

DRUGS (5)
  1. HUMIRA [Suspect]
     Indication: CROHN'S DISEASE
     Dates: start: 20090201, end: 20090601
  2. MERCAPTOPURINE [Concomitant]
     Indication: CROHN'S DISEASE
     Dates: start: 20091201
  3. MEZAVANT [Concomitant]
     Indication: CROHN'S DISEASE
     Route: 048
     Dates: start: 20090201
  4. TRAMADOL HCL [Concomitant]
     Indication: ABDOMINAL PAIN
     Dosage: QDS
     Route: 048
  5. OMEPRAZOLE [Concomitant]
     Indication: GASTROOESOPHAGEAL REFLUX DISEASE
     Route: 048

REACTIONS (1)
  - CHOLANGITIS SCLEROSING [None]
